FAERS Safety Report 8470412-8 (Version None)
Quarter: 2012Q2

REPORT INFORMATION
  Report Type: 
  Country: None (occurrence: None)
  Receive Date: 20120620
  Receipt Date: 20120608
  Transmission Date: 20120825
  Serious: Yes (Hospitalization)
  Sender: FDA-Public Use
  Company Number: KAD201205-000323

PATIENT
  Sex: Female
  Weight: 66.36 kg

DRUGS (3)
  1. PEGASYS [Suspect]
     Dates: start: 20120101
  2. PENICILLIN (PENICILLIN) [Suspect]
  3. RIBAVIRIN [Suspect]
     Dates: start: 20120101

REACTIONS (3)
  - SWELLING [None]
  - PRURITUS [None]
  - DRY SKIN [None]
